FAERS Safety Report 5885813-1 (Version None)
Quarter: 2008Q3

REPORT INFORMATION
  Report Type: 
  Country: None (occurrence: None)
  Receive Date: 20080917
  Receipt Date: 20080818
  Transmission Date: 20090109
  Serious: No
  Sender: FDA-Public Use
  Company Number: US-JNJFOC-20080804225

PATIENT
  Age: 30 Year
  Sex: Male
  Weight: 70.31 kg

DRUGS (4)
  1. INVEGA [Suspect]
     Route: 048
  2. INVEGA [Suspect]
     Route: 048
  3. INVEGA [Suspect]
     Indication: SCHIZOPHRENIA
     Route: 048
  4. PROZAC [Concomitant]
     Indication: DEPRESSION
     Route: 048

REACTIONS (5)
  - FEELING COLD [None]
  - HOT FLUSH [None]
  - OEDEMA PERIPHERAL [None]
  - RASH MACULAR [None]
  - SKIN DISCOLOURATION [None]
